FAERS Safety Report 21027882 (Version 1)
Quarter: 2022Q2

REPORT INFORMATION
  Report Type: Spontaneous
  Country: US (occurrence: None)
  Receive Date: 20220630
  Receipt Date: 20220630
  Transmission Date: 20220720
  Serious: Yes (Hospitalization)
  Sender: FDA-Public Use
  Company Number: None

PATIENT
  Sex: Female

DRUGS (1)
  1. INLYTA [Suspect]
     Active Substance: AXITINIB

REACTIONS (11)
  - Illness [None]
  - Therapy non-responder [None]
  - Faeces soft [None]
  - Faeces hard [None]
  - Pain [None]
  - Hypertension [None]
  - Stomatitis [None]
  - Genital ulceration [None]
  - Dysphonia [None]
  - Feeding disorder [None]
  - Weight decreased [None]
